FAERS Safety Report 6609840-1 (Version None)
Quarter: 2010Q1

REPORT INFORMATION
  Report Type: 
  Country: None (occurrence: None)
  Receive Date: 20100302
  Receipt Date: 20100217
  Transmission Date: 20100710
  Serious: Yes (Hospitalization)
  Sender: FDA-Public Use
  Company Number: PHHY2010DE09012

PATIENT
  Sex: Female
  Weight: 89 kg

DRUGS (9)
  1. ZOLEDRONATE T29581+ [Suspect]
     Indication: PROPHYLAXIS
     Dosage: 4 MG EVERY 4 WEEKS
     Route: 042
     Dates: start: 20090721
  2. IBUPROFEN [Concomitant]
     Dosage: 600 MG, TID
  3. CYNT [Concomitant]
     Dosage: 0.4 MG DAILY
  4. DIOVAN [Concomitant]
     Dosage: 160 MG DAILY
  5. BISOPROLOL [Concomitant]
     Dosage: 5 MG DAILY
  6. TOREM [Concomitant]
     Dosage: 10 MG DAILY
  7. CALCIUM [Concomitant]
     Dosage: 3000 MG DAILY
     Route: 048
  8. VITAMIN D [Concomitant]
     Dosage: 0.02 I.E DAILY
     Route: 048
  9. FEMARA [Concomitant]
     Dosage: 2.5 MG, QD
     Route: 048
     Dates: start: 20090825

REACTIONS (2)
  - APHASIA [None]
  - CEREBROVASCULAR ACCIDENT [None]
